FAERS Safety Report 12803939 (Version 1)
Quarter: 2016Q4

REPORT INFORMATION
  Report Type: Spontaneous
  Country: IR (occurrence: IR)
  Receive Date: 20161003
  Receipt Date: 20161003
  Transmission Date: 20170207
  Serious: Yes (Other)
  Sender: FDA-Public Use
  Company Number: IR-PFIZER INC-2016454987

PATIENT
  Age: 19 Year
  Sex: Female

DRUGS (2)
  1. METHOTREXATE SODIUM. [Suspect]
     Active Substance: METHOTREXATE SODIUM
     Indication: GESTATIONAL TROPHOBLASTIC TUMOUR
     Dosage: 50 MG/M2, WEEKLY
  2. METHOTREXATE SODIUM. [Suspect]
     Active Substance: METHOTREXATE SODIUM
     Indication: CHEMOTHERAPY
     Dosage: UNK, CYCLIC (11 CYCLES)

REACTIONS (3)
  - Shock [Recovered/Resolved]
  - Uterine rupture [Recovered/Resolved]
  - Abdominal pain [Recovered/Resolved]
